FAERS Safety Report 9232795 (Version 1)
Quarter: 2013Q2

REPORT INFORMATION
  Report Type: Report from Study
  Country: CA (occurrence: CA)
  Receive Date: 20130416
  Receipt Date: 20130416
  Transmission Date: 20140414
  Serious: Yes (Hospitalization)
  Sender: FDA-Public Use
  Company Number: CA-JNJFOC-20130404219

PATIENT
  Age: 58 Year
  Sex: Female
  Weight: 66.7 kg

DRUGS (14)
  1. REMICADE [Suspect]
     Indication: CROHN^S DISEASE
     Route: 042
     Dates: start: 20121030
  2. SALOFALK [Concomitant]
     Route: 065
  3. IMURAN [Concomitant]
     Route: 065
  4. TROSPIUM [Concomitant]
     Route: 048
  5. MINOCIN [Concomitant]
     Route: 048
  6. GRAVOL [Concomitant]
     Route: 065
  7. PERCOCET [Concomitant]
     Route: 065
  8. ZOPICLONE [Concomitant]
     Route: 065
  9. PREVACID [Concomitant]
     Route: 065
  10. CIPRALEX [Concomitant]
     Route: 065
  11. METFORMIN [Concomitant]
     Route: 065
  12. ALTACE [Concomitant]
     Route: 048
  13. NORVASC [Concomitant]
     Route: 048
  14. METOPROLOL [Concomitant]
     Route: 065

REACTIONS (1)
  - Myocardial infarction [Recovering/Resolving]
